FAERS Safety Report 8885212 (Version 4)
Quarter: 2013Q2

REPORT INFORMATION
  Report Type: Spontaneous
  Country: JP (occurrence: JP)
  Receive Date: 20121102
  Receipt Date: 20130605
  Transmission Date: 20140414
  Serious: Yes (Death)
  Sender: FDA-Public Use
  Company Number: JP-GENZYME-FABR-1002814

PATIENT
  Age: 45 Year
  Sex: Male
  Weight: 55 kg

DRUGS (11)
  1. FABRAZYME [Suspect]
     Indication: FABRY^S DISEASE
     Dosage: 55 MG (1 MG/KG), UNK
     Route: 042
     Dates: start: 20040813, end: 20121017
  2. ASPIRIN [Suspect]
     Indication: PROPHYLAXIS
     Dosage: 100 MG, QID
     Route: 048
     Dates: end: 20121019
  3. WARFARIN POTASSIUM [Suspect]
     Indication: PROPHYLAXIS
     Dosage: 4 MG, QID
     Route: 048
     Dates: start: 200702, end: 20121019
  4. WARFARIN POTASSIUM [Suspect]
     Dosage: 1 MG, QID
     Route: 048
     Dates: end: 20121019
  5. PLAVIX [Suspect]
     Indication: PROPHYLAXIS
     Dosage: 75 MG, QID
     Route: 048
     Dates: end: 20121019
  6. CARBAMAZEPIN [Concomitant]
     Indication: NEURALGIA
     Dosage: 200 MG, QID
     Route: 048
     Dates: end: 20121019
  7. RABEPRAZOLE SODIUM [Concomitant]
     Indication: PROPHYLAXIS AGAINST GASTROINTESTINAL ULCER
     Dosage: 10 MG, QID
     Route: 048
     Dates: end: 20121019
  8. SPIRONOLACTONE [Concomitant]
     Indication: OEDEMA
     Dosage: 25 MG, QID
     Route: 048
     Dates: end: 20121019
  9. CANDESARTAN CILEXETIL [Concomitant]
     Indication: PROTEIN URINE
     Dosage: 4 MG, QID
     Route: 048
     Dates: end: 20121019
  10. REBAMIPIDE [Concomitant]
     Indication: GASTRITIS
     Dosage: 300 MG, TID
     Route: 048
     Dates: end: 20121019
  11. FUROSEMIDE [Concomitant]
     Indication: OEDEMA
     Dosage: 20 MG, QID
     Route: 048
     Dates: end: 20121019

REACTIONS (2)
  - Cardio-respiratory arrest [Fatal]
  - Cerebral haemorrhage [Fatal]
